FAERS Safety Report 4720818-5 (Version None)
Quarter: 2005Q3

REPORT INFORMATION
  Report Type: 
  Country: None (occurrence: None)
  Receive Date: 20050721
  Receipt Date: 20050714
  Transmission Date: 20060218
  Serious: Yes (Other)
  Sender: FDA-Public Use
  Company Number: PHNU2005DE02547

PATIENT
  Sex: Female

DRUGS (3)
  1. CLOZARIL [Suspect]
     Dosage: 550 MG/DAY
     Route: 048
     Dates: start: 20050414
  2. PANTOPRAZOLE SODIUM [Concomitant]
  3. GASTROZEPIN [Concomitant]

REACTIONS (4)
  - C-REACTIVE PROTEIN INCREASED [None]
  - CHOLELITHIASIS [None]
  - PAROTID GLAND ENLARGEMENT [None]
  - PAROTITIS [None]
